FAERS Safety Report 24954155 (Version 1)
Quarter: 2025Q1

REPORT INFORMATION
  Report Type: Report from Study
  Country: CA (occurrence: CA)
  Receive Date: 20250211
  Receipt Date: 20250211
  Transmission Date: 20250409
  Serious: Yes (Hospitalization, Other)
  Sender: ABBVIE
  Company Number: CA-ABBVIE-6126189

PATIENT
  Age: 29 Year
  Sex: Male

DRUGS (1)
  1. SKYRIZI [Suspect]
     Active Substance: RISANKIZUMAB-RZAA
     Indication: Crohn^s disease
     Dosage: 600MG EVERY 4 WEEKS X3
     Route: 042
     Dates: start: 20241129

REACTIONS (5)
  - Abdominal adhesions [Recovered/Resolved]
  - Musculoskeletal chest pain [Recovered/Resolved]
  - Thrombosis [Recovered/Resolved]
  - Abdominal pain [Recovered/Resolved]
  - Abdominal abscess [Recovered/Resolved]

NARRATIVE: CASE EVENT DATE: 20241201
